FAERS Safety Report 8302810-7 (Version None)
Quarter: 2012Q2

REPORT INFORMATION
  Report Type: 
  Country: None (occurrence: None)
  Receive Date: 20120420
  Receipt Date: 20120412
  Transmission Date: 20120825
  Serious: Yes (Hospitalization)
  Sender: FDA-Public Use
  Company Number: US-BRISTOL-MYERS SQUIBB COMPANY-16521585

PATIENT
  Age: 71 Year
  Sex: Female

DRUGS (17)
  1. EMLA [Concomitant]
     Dosage: CREAM
  2. FLUOROURACIL [Suspect]
     Indication: COLORECTAL CANCER METASTATIC
     Route: 042
     Dates: start: 20120404
  3. MARINOL [Concomitant]
     Dosage: 1DF: 2.5 MG 1CAPS
     Route: 048
  4. ZOFRAN [Concomitant]
     Indication: VOMITING
     Dosage: EVERY 8 HRS AS NEEDED
     Route: 048
  5. CETUXIMAB [Suspect]
     Indication: COLORECTAL CANCER METASTATIC
     Route: 042
     Dates: start: 20120404
  6. COMPAZINE [Concomitant]
     Indication: NAUSEA
     Dosage: EVERY 6 HRS AS NEEDED
     Route: 048
  7. DEXAMETHASONE [Concomitant]
     Indication: VOMITING
     Route: 048
  8. ZOFRAN [Concomitant]
     Indication: NAUSEA
     Dosage: EVERY 8 HRS AS NEEDED
     Route: 048
  9. DEXAMETHASONE [Concomitant]
     Indication: NAUSEA
     Route: 048
  10. OXALIPLATIN [Suspect]
     Indication: COLORECTAL CANCER METASTATIC
     Route: 042
     Dates: start: 20120404
  11. ATIVAN [Concomitant]
     Dosage: TAB
     Route: 048
  12. COMPAZINE [Concomitant]
     Indication: VOMITING
     Dosage: EVERY 6 HRS AS NEEDED
     Route: 048
  13. IMODIUM [Concomitant]
     Indication: DIARRHOEA
     Dosage: 1DF: 2MG 2 TABS
     Route: 048
  14. LEXAPRO [Concomitant]
     Indication: DEPRESSION
     Dosage: 1DF:1/2 TAB 10MG
     Route: 048
  15. DASATINIB [Suspect]
     Indication: COLORECTAL CANCER METASTATIC
     Route: 048
     Dates: start: 20120404, end: 20120401
  16. IBUPROFEN (ADVIL) [Concomitant]
     Indication: PAIN
     Dosage: 1DF:1 TAB
     Route: 048
  17. CARTIA XT [Concomitant]
     Dosage: TAB
     Route: 048

REACTIONS (4)
  - DYSPNOEA [None]
  - OEDEMA PERIPHERAL [None]
  - PYREXIA [None]
  - ASCITES [None]
